FAERS Safety Report 6437816-6 (Version None)
Quarter: 2009Q4

REPORT INFORMATION
  Report Type: 
  Country: None (occurrence: None)
  Receive Date: 20091112
  Receipt Date: 20091106
  Transmission Date: 20100525
  Serious: Yes (Hospitalization)
  Sender: FDA-Public Use
  Company Number: US-BAYER-200936898NA

PATIENT
  Age: 46 Year
  Sex: Male

DRUGS (18)
  1. CAMPATH [Suspect]
     Indication: CHRONIC GRAFT VERSUS HOST DISEASE
     Dosage: 3MG, 10MG, 30MG; DAY +1, 3, 5, 8, 15, 22
     Route: 042
     Dates: start: 20090708, end: 20090728
  2. TACROLIMUS [Concomitant]
     Dosage: AS USED: 1 MG
     Route: 048
  3. TACROLIMUS [Concomitant]
     Dosage: 1 APPLICATION BID
     Route: 061
  4. TRIMETHOPRIM + SULFAMETHOXAZOLE [Concomitant]
     Dosage: SINGLE STRENGTH; 1 TAB DAILY
     Route: 048
  5. MYCOPHENOLATE MOFETIL [Concomitant]
     Dosage: TOTAL DAILY DOSE: 2000 MG
     Route: 048
  6. FLUCONAZOLE [Concomitant]
     Route: 048
  7. FOLIC ACID [Concomitant]
     Dosage: TOTAL DAILY DOSE: 1 MG
     Route: 048
  8. LEVOFLOXACIN [Concomitant]
     Dosage: TOTAL DAILY DOSE: 500 MG
     Route: 048
  9. AMLODIPINE [Concomitant]
     Dosage: TOTAL DAILY DOSE: 5 MG
     Route: 048
  10. OMEPRAZOLE [Concomitant]
     Dosage: AS USED: 40 MG
     Route: 048
  11. PREDNISONE [Concomitant]
     Dosage: TOTAL DAILY DOSE: 40 MG
     Route: 048
  12. LISINOPRIL [Concomitant]
     Dosage: TOTAL DAILY DOSE: 10 MG
     Route: 048
  13. MIRTAZAPINE [Concomitant]
     Dosage: TOTAL DAILY DOSE: 15 MG
     Route: 048
  14. SIROLIMUS [Concomitant]
     Dosage: TOTAL DAILY DOSE: 1 MG
     Route: 048
  15. CARISOPRODOL [Concomitant]
     Dosage: TOTAL DAILY DOSE: 1400 MG
     Route: 048
  16. BENZONATATE [Concomitant]
     Dosage: TOTAL DAILY DOSE: 300 MG
     Route: 048
  17. TRAZODONE HCL [Concomitant]
     Dosage: TOTAL DAILY DOSE: 100 MG
     Route: 048
  18. VALGANCICLOVIR HCL [Concomitant]
     Dosage: AS USED: 900 MG
     Route: 048

REACTIONS (2)
  - BK VIRUS INFECTION [None]
  - CYSTITIS HAEMORRHAGIC [None]
